FAERS Safety Report 11090188 (Version 1)
Quarter: 2015Q2

REPORT INFORMATION
  Report Type: Spontaneous
  Country: US (occurrence: None)
  Receive Date: 20150504
  Receipt Date: 20150504
  Transmission Date: 20150821
  Serious: Yes (Hospitalization)
  Sender: FDA-Public Use
  Company Number: None

PATIENT
  Age: 63 Year
  Sex: Male
  Weight: 85.2 kg

DRUGS (2)
  1. AMPICILLIN [Suspect]
     Active Substance: AMPICILLIN
     Indication: OSTEOMYELITIS
     Dosage: 2 GM, OTHER
     Route: 042
     Dates: start: 20150227, end: 20150304
  2. MELOXICAM. [Suspect]
     Active Substance: MELOXICAM
     Indication: PAIN
     Route: 048
     Dates: start: 20150226, end: 20150304

REACTIONS (1)
  - Nephritis [None]

NARRATIVE: CASE EVENT DATE: 20150317
